FAERS Safety Report 24233299 (Version 7)
Quarter: 2025Q3

REPORT INFORMATION
  Report Type: Spontaneous
  Country: US (occurrence: US)
  Receive Date: 20240821
  Receipt Date: 20250729
  Transmission Date: 20251020
  Serious: Yes (Other)
  Sender: SANOFI AVENTIS
  Company Number: US-SA-SAC20240815000023

PATIENT
  Age: 51 Year
  Sex: Female
  Weight: 59.55 kg

DRUGS (14)
  1. FABRAZYME [Suspect]
     Active Substance: AGALSIDASE BETA
     Indication: Fabry^s disease
     Dosage: 68 MG, QOW
     Route: 042
     Dates: start: 202402, end: 20250704
  2. FABRAZYME [Suspect]
     Active Substance: AGALSIDASE BETA
     Dosage: 68 MG, QOW
     Route: 042
     Dates: start: 202507
  3. CETIRIZINE HCL [Concomitant]
     Active Substance: CETIRIZINE HYDROCHLORIDE
  4. EPINEPHRINE [Concomitant]
     Active Substance: EPINEPHRINE
  5. BACTERIOSTATIC WATER [Concomitant]
     Active Substance: WATER
  6. METHYLPREDNISOLONE SODIUM SUCCINATE [Concomitant]
     Active Substance: METHYLPREDNISOLONE SODIUM SUCCINATE
  7. SODIUM CHLORIDE [Concomitant]
     Active Substance: SODIUM CHLORIDE
  8. METHYLPREDNISOLONE [Concomitant]
     Active Substance: METHYLPREDNISOLONE
  9. ACETAMINOPHEN [Concomitant]
     Active Substance: ACETAMINOPHEN
  10. ONDANSETRON [Concomitant]
     Active Substance: ONDANSETRON
  11. DIPHENHYDRAMINE [Concomitant]
     Active Substance: DIPHENHYDRAMINE
  12. BANOPHEN [Concomitant]
     Active Substance: DIPHENHYDRAMINE HYDROCHLORIDE
  13. STERILE WATER [Concomitant]
     Active Substance: WATER
  14. SODIUM CHLORIDE [Concomitant]
     Active Substance: SODIUM CHLORIDE

REACTIONS (5)
  - Spinal fracture [Unknown]
  - Vein disorder [Unknown]
  - Urinary tract infection [Unknown]
  - Vein rupture [Unknown]
  - Product preparation error [Unknown]

NARRATIVE: CASE EVENT DATE: 20240831
